FAERS Safety Report 4478554-9 (Version None)
Quarter: 2004Q4

REPORT INFORMATION
  Report Type: 
  Country: None (occurrence: None)
  Receive Date: 20041014
  Receipt Date: 20041001
  Transmission Date: 20050328
  Serious: Yes (Death)
  Sender: FDA-Public Use
  Company Number: HQWYE635207OCT04

PATIENT
  Age: 52 Year

DRUGS (3)
  1. INDERAL (PROPANOLOL HYDROCHLORIDE, TABLET) [Suspect]
     Dosage: ORAL
     Route: 048
  2. HYDROCODONE W/ACETAMINOPHEN (HYDROCODONE BITARTRATE/PARACETAMOL) [Suspect]
     Dosage: ORAL
     Route: 048
  3. VALPROIC ACID [Suspect]
     Dosage: ORAL
     Route: 048

REACTIONS (1)
  - COMPLETED SUICIDE [None]
